FAERS Safety Report 15602047 (Version 1)
Quarter: 2018Q4

REPORT INFORMATION
  Report Type: Spontaneous
  Country: ZA (occurrence: ZA)
  Receive Date: 20181109
  Receipt Date: 20181109
  Transmission Date: 20190205
  Serious: Yes (Death)
  Sender: FDA-Public Use
  Company Number: ZA-PFIZER INC-2018456042

PATIENT
  Age: 72 Year
  Sex: Female

DRUGS (8)
  1. ESPIRIDE [Suspect]
     Active Substance: SULPIRIDE
     Dosage: 50 MG, UNK
  2. LYRICA [Suspect]
     Active Substance: PREGABALIN
     Dosage: 25 MG, UNK
  3. COXLEON [Suspect]
     Active Substance: CELECOXIB
     Dosage: 200 MG, UNK
  4. ATIVAN [Suspect]
     Active Substance: LORAZEPAM
     Dosage: 1 MG, UNK
  5. RIVOTRIL [Suspect]
     Active Substance: CLONAZEPAM
     Dosage: 2 MG, UNK
  6. AUSTELL TRAMADOL [Suspect]
     Active Substance: TRAMADOL HYDROCHLORIDE
     Dosage: 50 MG, UNK
  7. BETMIGA [Suspect]
     Active Substance: MIRABEGRON
     Dosage: 25 MG, UNK
  8. OLEXAR [Suspect]
     Active Substance: OLANZAPINE
     Dosage: 2.5 MG, UNK

REACTIONS (1)
  - Death [Fatal]

NARRATIVE: CASE EVENT DATE: 20181022
